FAERS Safety Report 15129255 (Version 1)
Quarter: 2018Q3

REPORT INFORMATION
  Report Type: Spontaneous
  Country: US (occurrence: US)
  Receive Date: 20180711
  Receipt Date: 20180711
  Transmission Date: 20181010
  Serious: No
  Sender: FDA-Public Use
  Company Number: US-PFIZER INC-2018278044

PATIENT
  Age: 36 Year
  Sex: Male
  Weight: 83.91 kg

DRUGS (2)
  1. DIAZEPAM. [Concomitant]
     Active Substance: DIAZEPAM
     Indication: ANXIETY
     Dosage: 10 MG, 2X/DAY
     Route: 048
  2. LYRICA [Suspect]
     Active Substance: PREGABALIN
     Indication: GILBERT^S SYNDROME
     Dosage: 25 MG, 3X/DAY (25MG CAPSULE, 1 CAPSULE 3 TIMES A DAY MORNING, NOON AND NIGHT BY MOUTH)
     Route: 048
     Dates: start: 201806

REACTIONS (3)
  - Product use in unapproved indication [Unknown]
  - Pre-existing condition improved [Unknown]
  - Therapeutic response unexpected [Unknown]

NARRATIVE: CASE EVENT DATE: 201806
